FAERS Safety Report 6264150-X (Version None)
Quarter: 2009Q3

REPORT INFORMATION
  Report Type: 
  Country: None (occurrence: None)
  Receive Date: 20090710
  Receipt Date: 20090629
  Transmission Date: 20100115
  Serious: Yes (Life-Threatening, Hospitalization)
  Sender: FDA-Public Use
  Company Number: JP-PFIZER INC-2009234085

PATIENT
  Age: 83 Year

DRUGS (5)
  1. ESTRACYT [Suspect]
     Indication: PROSTATE CANCER
     Dosage: 626.8 MG
     Route: 048
     Dates: start: 20090428, end: 20090603
  2. VALSARTAN [Suspect]
     Indication: HYPERTENSION
     Dosage: 40 MG, 1X/DAY
     Route: 048
     Dates: end: 20090603
  3. NAFTOPIDIL [Concomitant]
     Dosage: 75 MG/DAY
     Route: 048
  4. INSULIN ASPART [Concomitant]
     Route: 058
  5. PITAVASTATIN CALCIUM [Concomitant]
     Dosage: 1 MG/DAY
     Route: 048
     Dates: end: 20090603

REACTIONS (4)
  - ALTERED STATE OF CONSCIOUSNESS [None]
  - BLOOD POTASSIUM INCREASED [None]
  - FIBRIN D DIMER INCREASED [None]
  - RENAL IMPAIRMENT [None]
